FAERS Safety Report 12250428 (Version 1)
Quarter: 2016Q2

REPORT INFORMATION
  Report Type: Spontaneous
  Country: US (occurrence: US)
  Receive Date: 20160408
  Receipt Date: 20160408
  Transmission Date: 20160815
  Serious: No
  Sender: FDA-Public Use
  Company Number: PHEH2016US008542

PATIENT
  Age: 66 Year
  Sex: Female

DRUGS (1)
  1. TYKERB [Suspect]
     Active Substance: LAPATINIB DITOSYLATE
     Indication: BREAST CANCER FEMALE
     Dosage: 1000 MG DAILY FOR 5 DAYS ON 2 DAYS OFF
     Route: 048
     Dates: start: 20140611

REACTIONS (2)
  - Lip dry [Unknown]
  - Epistaxis [Unknown]

NARRATIVE: CASE EVENT DATE: 20160222
